FAERS Safety Report 10344125 (Version 1)
Quarter: 2014Q3

REPORT INFORMATION
  Report Type: Spontaneous
  Country: FR (occurrence: None)
  Receive Date: 20140724
  Receipt Date: 20140724
  Transmission Date: 20150326
  Serious: Yes (Hospitalization)
  Sender: FDA-Public Use
  Company Number: FR-2014-2713

PATIENT
  Age: 38 Year
  Sex: Female

DRUGS (2)
  1. NAVELBINE [Suspect]
     Active Substance: VINORELBINE TARTRATE
     Indication: BREAST CANCER
     Dosage: 40 MG, CYCLICAL, NO OTHER SPECIFIED, INTRAVENOUS
     Route: 042
     Dates: start: 20140320, end: 20140325
  2. 5 FU (FLUOROURACIL) [Suspect]
     Active Substance: FLUOROURACIL
     Indication: BREAST CANCER
     Dosage: 750 MG, CYCLICAL, NO OTHER SPECIFIED, INTRAVNOUS
     Route: 042
     Dates: start: 20140320, end: 20140325

REACTIONS (6)
  - Dermatitis exfoliative [None]
  - Stomatitis [None]
  - Alopecia [None]
  - Pneumonia herpes viral [None]
  - Febrile bone marrow aplasia [None]
  - Melaena [None]

NARRATIVE: CASE EVENT DATE: 20140327
